FAERS Safety Report 17388477 (Version 2)
Quarter: 2020Q1

REPORT INFORMATION
  Report Type: Other
  Country: IT (occurrence: IT)
  Receive Date: 20200206
  Receipt Date: 20200220
  Transmission Date: 20200409
  Serious: Yes (Hospitalization, Other)
  Sender: FDA-Public Use
  Company Number: IT-VALIDUS PHARMACEUTICALS LLC-IT-2020VAL000087

PATIENT

DRUGS (1)
  1. LASIX [Suspect]
     Active Substance: FUROSEMIDE
     Indication: HYPERTENSIVE CRISIS
     Dosage: 2 DF, TOTAL
     Route: 048
     Dates: start: 20191212, end: 20191212

REACTIONS (4)
  - Acute kidney injury [Unknown]
  - Presyncope [Unknown]
  - Polyuria [Unknown]
  - Asthenia [Unknown]

NARRATIVE: CASE EVENT DATE: 20191213
